FAERS Safety Report 8561449-9 (Version None)
Quarter: 2012Q3

REPORT INFORMATION
  Report Type: 
  Country: None (occurrence: None)
  Receive Date: 20120802
  Receipt Date: 20120725
  Transmission Date: 20120928
  Serious: Yes (Hospitalization)
  Sender: FDA-Public Use
  Company Number: FR-GLAXOSMITHKLINE-B0818467A

PATIENT
  Age: 51 Year
  Sex: Female

DRUGS (2)
  1. LAMICTAL [Suspect]
     Indication: MIGRAINE
     Route: 048
     Dates: start: 20120601, end: 20120701
  2. AMOXICILLIN TRIHYDRATE [Concomitant]
     Indication: PYREXIA
     Route: 065
     Dates: start: 20120701

REACTIONS (5)
  - DRUG RASH WITH EOSINOPHILIA AND SYSTEMIC SYMPTOMS [None]
  - MYALGIA [None]
  - PYREXIA [None]
  - SKIN DISORDER [None]
  - OFF LABEL USE [None]
